FAERS Safety Report 5755492-2 (Version None)
Quarter: 2008Q2

REPORT INFORMATION
  Report Type: 
  Country: None (occurrence: None)
  Receive Date: 20080602
  Receipt Date: 20080523
  Transmission Date: 20081010
  Serious: Yes (Hospitalization)
  Sender: FDA-Public Use
  Company Number: FR-WYE-G01578308

PATIENT
  Age: 52 Year
  Sex: Female

DRUGS (3)
  1. EFFEXOR [Suspect]
     Indication: DEPRESSION
     Dosage: UNKNOWN
     Route: 048
     Dates: end: 20080405
  2. TAREG [Suspect]
     Dosage: UNKNOWN
     Route: 048
     Dates: end: 20080405
  3. RIVOTRIL [Suspect]
     Dosage: OVERDOSE AMOUNT: UNKNOWN
     Route: 048
     Dates: start: 20080405, end: 20080405

REACTIONS (9)
  - ALTERED STATE OF CONSCIOUSNESS [None]
  - AMNESIA [None]
  - CONFUSIONAL STATE [None]
  - HYPONATRAEMIA [None]
  - OVERDOSE [None]
  - PNEUMONIA ASPIRATION [None]
  - PSYCHOMOTOR RETARDATION [None]
  - PYREXIA [None]
  - TONGUE BITING [None]
